FAERS Safety Report 9943086 (Version 1)
Quarter: 2014Q1

REPORT INFORMATION
  Report Type: Spontaneous
  Country: DE (occurrence: DE)
  Receive Date: 20140303
  Receipt Date: 20140303
  Transmission Date: 20141002
  Serious: Yes (Other)
  Sender: FDA-Public Use
  Company Number: DE-TEVA-464062GER

PATIENT
  Sex: Female

DRUGS (1)
  1. COPAXONE [Suspect]
     Indication: MULTIPLE SCLEROSIS
     Dates: start: 20050601

REACTIONS (4)
  - Multiple sclerosis relapse [Recovered/Resolved]
  - Progressive multiple sclerosis [Not Recovered/Not Resolved]
  - Off label use [Not Recovered/Not Resolved]
  - Injection site pain [Not Recovered/Not Resolved]
